FAERS Safety Report 10370497 (Version 1)
Quarter: 2014Q3

REPORT INFORMATION
  Report Type: Spontaneous
  Country: US (occurrence: US)
  Receive Date: 20140808
  Receipt Date: 20140808
  Transmission Date: 20150326
  Serious: No
  Sender: FDA-Public Use
  Company Number: US-009507513-1408USA002716

PATIENT
  Sex: Female

DRUGS (4)
  1. TEMODAR [Suspect]
     Active Substance: TEMOZOLOMIDE
     Dosage: 320 MG ONCE FOR 5 DAYS, THEN OFF FOR 23 DAYS EVERY MONTH
     Route: 048
     Dates: start: 20140801
  2. TEMODAR [Suspect]
     Active Substance: TEMOZOLOMIDE
     Dosage: 320 MG ONCE FOR 5 DAYS, THEN OFF FOR 23 DAYS EVERY MONTH
     Route: 048
  3. TEMODAR [Suspect]
     Active Substance: TEMOZOLOMIDE
     Indication: BRAIN NEOPLASM
     Dosage: 320 MG ONCE FOR 5 DAYS, THEN OFF FOR 23 DAYS EVERY MONTH
     Route: 048
     Dates: start: 20140730, end: 20140730
  4. ZOFRAN [Concomitant]
     Active Substance: ONDANSETRON HYDROCHLORIDE
     Dosage: UNK, 45 MINUTES BEFORE THE DOSE OF TEMODAR

REACTIONS (11)
  - Decreased appetite [Not Recovered/Not Resolved]
  - Poor quality sleep [Not Recovered/Not Resolved]
  - Nausea [Not Recovered/Not Resolved]
  - Vomiting [Recovered/Resolved]
  - Constipation [Not Recovered/Not Resolved]
  - Paraesthesia oral [Not Recovered/Not Resolved]
  - Malaise [Not Recovered/Not Resolved]
  - Abdominal discomfort [Not Recovered/Not Resolved]
  - Inappropriate schedule of drug administration [Unknown]
  - Abdominal pain upper [Not Recovered/Not Resolved]
  - Paraesthesia mucosal [Not Recovered/Not Resolved]

NARRATIVE: CASE EVENT DATE: 201407
